FAERS Safety Report 16038877 (Version 1)
Quarter: 2019Q1

REPORT INFORMATION
  Report Type: Spontaneous
  Country: US (occurrence: US)
  Receive Date: 20190306
  Receipt Date: 20190306
  Transmission Date: 20190418
  Serious: Yes (Other)
  Sender: FDA-Public Use
  Company Number: PHHY2019US050066

PATIENT
  Age: 42 Year
  Sex: Female

DRUGS (1)
  1. ARGATROBAN. [Suspect]
     Active Substance: ARGATROBAN
     Indication: PULMONARY EMBOLISM
     Dosage: 2 (MCG/KG/MIN)
     Route: 042

REACTIONS (2)
  - Activated partial thromboplastin time prolonged [Unknown]
  - Hypofibrinogenaemia [Recovered/Resolved]
